FAERS Safety Report 20482391 (Version 1)
Quarter: 2022Q1

REPORT INFORMATION
  Report Type: Spontaneous
  Country: US (occurrence: US)
  Receive Date: 20220217
  Receipt Date: 20220217
  Transmission Date: 20220423
  Serious: No
  Sender: FDA-Public Use
  Company Number: US-ELI_LILLY_AND_COMPANY-US202111003557

PATIENT
  Age: 60 Year
  Sex: Female

DRUGS (1)
  1. TALTZ [Suspect]
     Active Substance: IXEKIZUMAB
     Indication: Psoriasis
     Dosage: UNK UNK, UNKNOWN
     Route: 065
     Dates: start: 202110

REACTIONS (5)
  - Headache [Recovered/Resolved]
  - Pyrexia [Recovered/Resolved]
  - COVID-19 [Not Recovered/Not Resolved]
  - Nasal congestion [Not Recovered/Not Resolved]
  - Inappropriate schedule of product administration [Unknown]

NARRATIVE: CASE EVENT DATE: 20220116
